FAERS Safety Report 4584061-5 (Version None)
Quarter: 2005Q1

REPORT INFORMATION
  Report Type: 
  Country: None (occurrence: None)
  Receive Date: 20050216
  Receipt Date: 20050208
  Transmission Date: 20050727
  Serious: Yes (Hospitalization)
  Sender: FDA-Public Use
  Company Number: US-AMGEN-US113275

PATIENT
  Age: 50 Year
  Sex: Female
  Weight: 54 kg

DRUGS (5)
  1. EPOGEN [Suspect]
     Indication: PRE-EXISTING DISEASE
     Dates: start: 20041220
  2. INTERFERON [Concomitant]
  3. TYLENOL [Concomitant]
  4. BENADRYL [Concomitant]
  5. NAPROXEN [Concomitant]

REACTIONS (4)
  - FATIGUE [None]
  - HOSPITALISATION [None]
  - INFLUENZA LIKE ILLNESS [None]
  - PAIN IN EXTREMITY [None]
